FAERS Safety Report 9239553 (Version 3)
Quarter: 2013Q3

REPORT INFORMATION
  Report Type: Spontaneous
  Country: US (occurrence: US)
  Receive Date: 20130418
  Receipt Date: 20130724
  Transmission Date: 20140515
  Serious: No
  Sender: FDA-Public Use
  Company Number: US-PFIZER INC-2013117889

PATIENT
  Age: 51 Year
  Sex: Male
  Weight: 91 kg

DRUGS (2)
  1. ARTHROTEC [Suspect]
     Indication: ARTHRITIS
     Dosage: 1 DF, 1X/DAY
     Dates: start: 2000
  2. LYRICA [Concomitant]
     Indication: CONVULSION
     Dosage: 200 MG, DAILY

REACTIONS (1)
  - Hypertension [Unknown]
